FAERS Safety Report 21467244 (Version 1)
Quarter: 2022Q4

REPORT INFORMATION
  Report Type: Report from Study
  Country: HU (occurrence: US)
  Receive Date: 20221017
  Receipt Date: 20221017
  Transmission Date: 20230113
  Serious: Yes (Disabling, Other)
  Sender: FDA-Public Use
  Company Number: HU-ELI_LILLY_AND_COMPANY-US202210004056

PATIENT
  Age: 57 Year
  Sex: Male
  Weight: 66.15 kg

DRUGS (1)
  1. FLUOXETINE HYDROCHLORIDE [Suspect]
     Active Substance: FLUOXETINE HYDROCHLORIDE
     Indication: Depression
     Dosage: UNK UNK, UNKNOWN
     Route: 065

REACTIONS (6)
  - Depression [Unknown]
  - Mood altered [Unknown]
  - Aggression [Unknown]
  - Anxiety [Unknown]
  - Suicidal ideation [Unknown]
  - Product counterfeit [Unknown]

NARRATIVE: CASE EVENT DATE: 20180611
